FAERS Safety Report 23773144 (Version 2)
Quarter: 2024Q2

REPORT INFORMATION
  Report Type: Spontaneous
  Country: CA (occurrence: CA)
  Receive Date: 20240423
  Receipt Date: 20240423
  Transmission Date: 20240715
  Serious: Yes (Life-Threatening, Hospitalization, Other)
  Sender: FDA-Public Use
  Company Number: CA-TEVA-VS-3185496

PATIENT
  Age: 50 Year
  Sex: Male

DRUGS (7)
  1. METHOTREXATE [Suspect]
     Active Substance: METHOTREXATE
     Indication: Dermatitis atopic
     Route: 065
  2. EMPAGLIFLOZIN [Concomitant]
     Active Substance: EMPAGLIFLOZIN
     Indication: Diabetes mellitus
     Route: 065
  3. GLICLAZIDE [Concomitant]
     Active Substance: GLICLAZIDE
     Indication: Diabetes mellitus
     Route: 065
  4. METFORMIN\SITAGLIPTIN [Concomitant]
     Active Substance: METFORMIN\SITAGLIPTIN
     Indication: Diabetes mellitus
     Route: 065
  5. INDAPAMIDE\PERINDOPRIL [Concomitant]
     Active Substance: INDAPAMIDE\PERINDOPRIL
     Indication: Hypertension
     Route: 065
  6. ROSUVASTATIN [Concomitant]
     Active Substance: ROSUVASTATIN
     Indication: Dyslipidaemia
     Route: 065
  7. CLOXACILLIN [Concomitant]
     Active Substance: CLOXACILLIN
     Indication: Diabetes mellitus
     Route: 042

REACTIONS (15)
  - Acute kidney injury [Recovered/Resolved]
  - Haematological infection [Recovered/Resolved]
  - Off label use [Recovered/Resolved]
  - Pneumonia bacterial [Recovered/Resolved]
  - Pneumonia klebsiella [Recovered/Resolved]
  - Staphylococcal bacteraemia [Recovered/Resolved]
  - Bacteraemia [Recovered/Resolved]
  - Disseminated varicella zoster virus infection [Recovered/Resolved]
  - Pneumonia [Recovered/Resolved]
  - Respiratory failure [Recovered/Resolved]
  - Septic shock [Recovered/Resolved]
  - Skin bacterial infection [Recovered/Resolved]
  - Varicella zoster pneumonia [Recovered/Resolved]
  - Enterobacter infection [Recovered/Resolved]
  - Thrombocytopenia [Recovered/Resolved]
